FAERS Safety Report 5614957-4 (Version None)
Quarter: 2008Q1

REPORT INFORMATION
  Report Type: 
  Country: None (occurrence: None)
  Receive Date: 20080206
  Receipt Date: 20080130
  Transmission Date: 20080703
  Serious: Yes (Life-Threatening, Hospitalization)
  Sender: FDA-Public Use
  Company Number: US-TEVA-167018USA

PATIENT
  Sex: Female

DRUGS (1)
  1. LISINOPRIL TABLETS USP, 2.5MG, 5MG, 10MG, 20MG, 30MG, 40MG [Suspect]
     Indication: HYPERTENSION
     Route: 048
     Dates: start: 20070904, end: 20070920

REACTIONS (7)
  - CHILLS [None]
  - CYSTITIS [None]
  - HYPERAESTHESIA [None]
  - HYPERHIDROSIS [None]
  - MUSCLE SPASMS [None]
  - MUSCULAR WEAKNESS [None]
  - URINARY RETENTION [None]
